FAERS Safety Report 16157787 (Version 1)
Quarter: 2019Q2

REPORT INFORMATION
  Report Type: Spontaneous
  Country: AU (occurrence: AU)
  Receive Date: 20190404
  Receipt Date: 20190404
  Transmission Date: 20190711
  Serious: Yes (Hospitalization)
  Sender: FDA-Public Use
  Company Number: AU-PFIZER INC-2019135902

PATIENT
  Age: 65 Year
  Sex: Male

DRUGS (3)
  1. DBL METHOTREXATE [Suspect]
     Active Substance: METHOTREXATE SODIUM
  2. SULFASALAZINE. [Suspect]
     Active Substance: SULFASALAZINE
     Dosage: UNK
  3. ENBREL [Suspect]
     Active Substance: ETANERCEPT
     Dosage: UNK

REACTIONS (2)
  - Rash generalised [None]
  - Anaphylactic reaction [Unknown]
